FAERS Safety Report 15183926 (Version 1)
Quarter: 2018Q3

REPORT INFORMATION
  Report Type: Spontaneous
  Country: US (occurrence: US)
  Receive Date: 20180723
  Receipt Date: 20180723
  Transmission Date: 20181010
  Serious: No
  Sender: FDA-Public Use
  Company Number: US-SUNOVION-2018SUN002725

PATIENT
  Sex: Male

DRUGS (4)
  1. LATUDA [Suspect]
     Active Substance: LURASIDONE HYDROCHLORIDE
     Indication: BIPOLAR DISORDER
     Route: 048
  2. LAMICTAL [Suspect]
     Active Substance: LAMOTRIGINE
  3. EPILIM [Suspect]
     Active Substance: VALPROATE SODIUM
  4. LITHIUM. [Suspect]
     Active Substance: LITHIUM

REACTIONS (1)
  - Decreased interest [Unknown]
